FAERS Safety Report 7704011-X (Version None)
Quarter: 2011Q3

REPORT INFORMATION
  Report Type: 
  Country: None (occurrence: None)
  Receive Date: 20110823
  Receipt Date: 20110815
  Transmission Date: 20111222
  Serious: Yes (Other)
  Sender: FDA-Public Use
  Company Number: TR-BAXTER-2011BH026697

PATIENT
  Age: 71 Year
  Sex: Female

DRUGS (5)
  1. DIURETICS [Concomitant]
     Indication: PRODUCT USED FOR UNKNOWN INDICATION
     Route: 065
  2. ANGIOTENSIN CONVERTING ENZYME INHIBITOR [Concomitant]
     Indication: PRODUCT USED FOR UNKNOWN INDICATION
     Route: 065
  3. OMEPRAZOLE [Concomitant]
     Indication: PRODUCT USED FOR UNKNOWN INDICATION
     Route: 065
  4. METRONIDAZOLE [Suspect]
     Indication: PNEUMONIA
     Route: 042
  5. BRONCHODILATORS [Concomitant]
     Indication: DYSPNOEA
     Route: 065

REACTIONS (2)
  - ELECTROCARDIOGRAM T WAVE INVERSION [None]
  - ELECTROCARDIOGRAM QT PROLONGED [None]
